FAERS Safety Report 6933171-3 (Version None)
Quarter: 2010Q3

REPORT INFORMATION
  Report Type: 
  Country: None (occurrence: None)
  Receive Date: 20100820
  Receipt Date: 20100812
  Transmission Date: 20110219
  Serious: Yes (Hospitalization)
  Sender: FDA-Public Use
  Company Number: US-BIOGENIDEC-2010BI024856

PATIENT
  Age: 65 Year
  Sex: Female

DRUGS (2)
  1. AVONEX [Suspect]
     Indication: MULTIPLE SCLEROSIS
     Route: 030
     Dates: start: 20050601
  2. AVONEX [Suspect]
     Route: 030
     Dates: start: 19980901

REACTIONS (5)
  - ELECTROENCEPHALOGRAM ABNORMAL [None]
  - FALL [None]
  - HAEMATOMA [None]
  - INTERNAL HERNIA [None]
  - INTESTINAL OBSTRUCTION [None]
